FAERS Safety Report 14713083 (Version 1)
Quarter: 2018Q2

REPORT INFORMATION
  Report Type: Spontaneous
  Country: US (occurrence: US)
  Receive Date: 20180404
  Receipt Date: 20180404
  Transmission Date: 20180711
  Serious: No
  Sender: FDA-Public Use
  Company Number: US-PFIZER INC-2017399005

PATIENT
  Age: 86 Year
  Sex: Male
  Weight: 65.76 kg

DRUGS (2)
  1. DICLOFENAC SODIQUE MISOPROSTOL [Suspect]
     Active Substance: DICLOFENAC SODIUM\MISOPROSTOL
     Indication: PAIN MANAGEMENT
     Dosage: UNK (MISOPROSTOL: 75MG, DICLOFENAC SODIUM: 0.2MG)
     Route: 048
  2. GABAPENTIN. [Concomitant]
     Active Substance: GABAPENTIN
     Indication: PAIN MANAGEMENT
     Dosage: 600 MG, 3X/DAY
     Route: 048

REACTIONS (3)
  - Dysphagia [Unknown]
  - Product size issue [Unknown]
  - Dyspepsia [Unknown]
